FAERS Safety Report 23357468 (Version 1)
Quarter: 2024Q1

REPORT INFORMATION
  Report Type: Spontaneous
  Country: TR (occurrence: TR)
  Receive Date: 20240102
  Receipt Date: 20240102
  Transmission Date: 20240409
  Serious: No
  Sender: FDA-Public Use
  Company Number: TR-PFIZER INC-202300453990

PATIENT
  Age: 59 Year
  Sex: Male

DRUGS (1)
  1. ENBREL [Suspect]
     Active Substance: ETANERCEPT
     Dosage: 25 MG/0.5ML, 2X/WEEK

REACTIONS (6)
  - Needle issue [Unknown]
  - Device difficult to use [Unknown]
  - Injection site swelling [Unknown]
  - Injection site pain [Unknown]
  - Injection site irritation [Unknown]
  - Skin injury [Unknown]
